FAERS Safety Report 6875273-6 (Version None)
Quarter: 2010Q3

REPORT INFORMATION
  Report Type: 
  Country: None (occurrence: None)
  Receive Date: 20100727
  Receipt Date: 20100715
  Transmission Date: 20110219
  Serious: Yes (Hospitalization)
  Sender: FDA-Public Use
  Company Number: US-JNJFOC-20100603653

PATIENT
  Sex: Female

DRUGS (6)
  1. SIMPONI [Suspect]
     Indication: RHEUMATOID ARTHRITIS
     Route: 058
  2. ANTIHYPERTENSIVES [Concomitant]
     Indication: BLOOD PRESSURE
  3. THYROID  THERAPY [Concomitant]
     Indication: THYROID DISORDER
  4. CRESTOR [Concomitant]
     Indication: CARDIAC DISORDER
  5. PREDNISONE [Concomitant]
  6. MIACALCIN [Concomitant]

REACTIONS (1)
  - PNEUMONIA [None]
